FAERS Safety Report 12522783 (Version 3)
Quarter: 2016Q4

REPORT INFORMATION
  Report Type: Spontaneous
  Country: FR (occurrence: FR)
  Receive Date: 20160701
  Receipt Date: 20161024
  Transmission Date: 20170207
  Serious: Yes (Life-Threatening)
  Sender: FDA-Public Use
  Company Number: FR-VALIDUS PHARMACEUTICALS LLC-FR-2016VAL002195

PATIENT
  Age: 67 Year
  Sex: Female

DRUGS (1)
  1. FUROSEMIDE. [Suspect]
     Active Substance: FUROSEMIDE
     Indication: CARDIAC FAILURE
     Dosage: 0.5 DF, QD
     Route: 048
     Dates: start: 2015

REACTIONS (4)
  - Product physical issue [Unknown]
  - Intentional product misuse [Unknown]
  - Incorrect dose administered [Unknown]
  - Drug ineffective [Unknown]
